FAERS Safety Report 9016383 (Version 1)
Quarter: 2013Q1

REPORT INFORMATION
  Report Type: Spontaneous
  Country: DE (occurrence: TR)
  Receive Date: 20130116
  Receipt Date: 20130116
  Transmission Date: 20140127
  Serious: Yes (Other)
  Sender: FDA-Public Use
  Company Number: TR-FRI-1000041638

PATIENT
  Age: 79 Year
  Sex: Female

DRUGS (10)
  1. MEMANTINE [Suspect]
     Indication: DEMENTIA ALZHEIMER^S TYPE
     Dosage: 5 MG
     Route: 048
     Dates: start: 20121231, end: 20121231
  2. MONOKET [Concomitant]
     Indication: ANGINA PECTORIS
     Route: 048
  3. MONOKET [Concomitant]
     Indication: CORONARY ARTERY INSUFFICIENCY
  4. MONOKET [Concomitant]
     Indication: MYOCARDIAL INFARCTION
  5. CONCOR [Concomitant]
     Indication: HYPERTENSION
     Route: 048
  6. CONCOR [Concomitant]
     Indication: ANGINA PECTORIS
  7. SITOREL [Concomitant]
     Indication: ANGINA PECTORIS
     Route: 048
  8. SITOREL [Concomitant]
     Indication: VERTIGO
  9. SITOREL [Concomitant]
     Indication: TINNITUS
  10. SITOREL [Concomitant]
     Indication: MENIERE^S DISEASE

REACTIONS (3)
  - Blindness transient [Recovered/Resolved]
  - Aphasia [Recovered/Resolved]
  - Visual impairment [Recovered/Resolved]
